FAERS Safety Report 10151875 (Version 1)
Quarter: 2014Q2

REPORT INFORMATION
  Report Type: Spontaneous
  Country: US (occurrence: None)
  Receive Date: 20140501
  Receipt Date: 20140501
  Transmission Date: 20141212
  Serious: Yes (Other)
  Sender: FDA-Public Use
  Company Number: 54973 AE # 1533

PATIENT
  Age: 12 Year
  Sex: Female

DRUGS (1)
  1. HYLAND^S NERVE TONIC [Suspect]
     Indication: TENSION
     Dosage: 3 TABS QD, PRN X 2 WEEKS

REACTIONS (4)
  - Partial seizures [None]
  - Diarrhoea [None]
  - Feeling abnormal [None]
  - Saccadic eye movement [None]
